FAERS Safety Report 7545287-1 (Version None)
Quarter: 2011Q2

REPORT INFORMATION
  Report Type: 
  Country: None (occurrence: None)
  Receive Date: 20110614
  Receipt Date: 20110607
  Transmission Date: 20111010
  Serious: Yes (Death)
  Sender: FDA-Public Use
  Company Number: RS-JNJFOC-20110604949

PATIENT
  Age: 33 Year
  Sex: Female

DRUGS (3)
  1. RISPERIDONE [Suspect]
     Indication: SCHIZOPHRENIA
     Route: 030
     Dates: start: 20100901
  2. ALVENTA [Concomitant]
     Dosage: EVENING
     Route: 048
  3. BENSEDIN [Concomitant]
     Dosage: 2.5+2.5+5 MG
     Route: 048

REACTIONS (1)
  - COMPLETED SUICIDE [None]
